FAERS Safety Report 5868472-3 (Version None)
Quarter: 2008Q3

REPORT INFORMATION
  Report Type: 
  Country: None (occurrence: None)
  Receive Date: 20080902
  Receipt Date: 20080902
  Transmission Date: 20090109
  Serious: Yes (Other)
  Sender: FDA-Public Use
  Company Number: None

PATIENT
  Age: 51 Year
  Sex: Female
  Weight: 95.2554 kg

DRUGS (1)
  1. LEVAQUIN [Suspect]
     Indication: SINUSITIS
     Dosage: 1 DAILY PO
     Route: 048
     Dates: start: 20080825, end: 20080826

REACTIONS (11)
  - AGITATION [None]
  - CHILLS [None]
  - FEELING ABNORMAL [None]
  - GENITAL DISORDER FEMALE [None]
  - HYPERHIDROSIS [None]
  - HYPOAESTHESIA [None]
  - INSOMNIA [None]
  - MUSCULOSKELETAL STIFFNESS [None]
  - OEDEMA PERIPHERAL [None]
  - PARAESTHESIA [None]
  - VAGINAL INFECTION [None]
